FAERS Safety Report 7360589-X (Version None)
Quarter: 2011Q1

REPORT INFORMATION
  Report Type: 
  Country: None (occurrence: None)
  Receive Date: 20110310
  Receipt Date: 20110228
  Transmission Date: 20110831
  Serious: Yes (Hospitalization)
  Sender: FDA-Public Use
  Company Number: 840636

PATIENT
  Age: 15 Year
  Sex: Male
  Weight: 81.4 kg

DRUGS (11)
  1. CYTARABINE [Concomitant]
  2. BENADRYL [Concomitant]
  3. TOBRAMYCIN [Concomitant]
  4. METHOTREXATE [Suspect]
     Indication: PRODUCT USED FOR UNKNOWN INDICATION
     Dosage: 15MG, ONCE, INTRATHECAL
     Route: 037
  5. ACETAMINOPHEN [Concomitant]
  6. (PIPERACILLIN W/TAZOBACTAM /01606301/) [Concomitant]
  7. LEUCOVORIN CALCIUM [Concomitant]
  8. ONDANSETRON [Concomitant]
  9. SEPTRA [Concomitant]
  10. THIOGUANINE [Concomitant]
  11. LANSOPRAZOLE [Concomitant]

REACTIONS (9)
  - AGITATION [None]
  - CONVULSION [None]
  - HEMIPARESIS [None]
  - MUSCULAR WEAKNESS [None]
  - PROGRESSIVE MULTIFOCAL LEUKOENCEPHALOPATHY [None]
  - DEPRESSED LEVEL OF CONSCIOUSNESS [None]
  - DYSPHAGIA [None]
  - SPEECH DISORDER [None]
  - CONFUSIONAL STATE [None]
